FAERS Safety Report 8639375 (Version 6)
Quarter: 2012Q4

REPORT INFORMATION
  Report Type: 
  Country: GB (occurrence: GB)
  Receive Date: 20120627
  Receipt Date: 20120913
  Transmission Date: 20130627
  Serious: Yes (Hospitalization, Other)
  Sender: FDA-Public Use
  Company Number: GB-WATSON-2012-10444

PATIENT
  Age: 36 Year
  Sex: Female

DRUGS (23)
  1. LACTULOSE [Suspect]
     Indication: PRODUCT USED FOR UNKNOWN INDICATION
     Dosage: 10 ml, prn at night
     Route: 065
  2. PERINDOPRIL [Suspect]
     Indication: PRODUCT USED FOR UNKNOWN INDICATION
     Dosage: 2 mg, daily
     Route: 048
  3. ZOPICLONE [Suspect]
     Indication: PRODUCT USED FOR UNKNOWN INDICATION
     Dosage: 3.75 mg, daily, nocte
     Route: 065
  4. FOLIC ACID [Suspect]
     Indication: PRODUCT USED FOR UNKNOWN INDICATION
     Dosage: 5 mg, QD
     Route: 048
  5. DIAZEPAM [Suspect]
     Indication: PRODUCT USED FOR UNKNOWN INDICATION
     Dosage: At night
     Route: 065
  6. TRIMETHOPRIM [Suspect]
     Indication: URINARY TRACT INFECTION
     Dosage: UNK
     Route: 065
  7. ZOTON [Suspect]
     Indication: PRODUCT USED FOR UNKNOWN INDICATION
     Dosage: 30 mg, daily
     Route: 048
  8. CLOZAPINE [Suspect]
     Indication: SCHIZOPHRENIA
     Dosage: UNK mg, daily
     Route: 048
     Dates: start: 20080605
  9. CLOZAPINE [Suspect]
     Dosage: 250 mg, daily
     Route: 048
     Dates: start: 20080519
  10. CLOZAPINE [Suspect]
     Dosage: 250 mg, daily
     Dates: start: 200505, end: 20050519
  11. CLOZAPINE [Suspect]
     Dosage: UNK
     Dates: start: 20060605, end: 20060713
  12. FESOFOR [Suspect]
     Indication: PRODUCT USED FOR UNKNOWN INDICATION
     Dosage: 200 mg, bid
     Route: 048
  13. CLOZARIL [Suspect]
     Indication: SCHIZOPHRENIA
     Dosage: 250 mg, daily
     Route: 048
     Dates: start: 20060605, end: 20060713
  14. CLOZARIL [Suspect]
     Dosage: 250 mg, daily
     Route: 048
     Dates: start: 200505, end: 20050519
  15. CLOZARIL [Suspect]
     Dosage: UNK
     Route: 065
     Dates: start: 20080605
  16. CLOZARIL [Suspect]
     Dosage: 250 mg, daily
     Dates: start: 20080519
  17. ATORVASTATIN [Concomitant]
     Indication: PRODUCT USED FOR UNKNOWN INDICATION
     Dosage: UNK
     Route: 065
  18. BENDROFLUAZIDE [Concomitant]
     Indication: HYPERTENSION
     Dosage: UNK
     Route: 065
  19. FUROSEMIDE [Concomitant]
     Indication: HYPERTENSION
     Dosage: UNK
     Route: 065
  20. RAMIPRIL [Concomitant]
     Indication: HYPERTENSION
     Dosage: UNK
     Route: 048
  21. ARIPIPRAZOLE [Concomitant]
     Indication: PRODUCT USED FOR UNKNOWN INDICATION
     Dosage: UNK
     Route: 065
  22. ABILIFY [Concomitant]
     Indication: PRODUCT USED FOR UNKNOWN INDICATION
     Dosage: unk
     Route: 065
  23. ZOPICLONE [Concomitant]
     Indication: PRODUCT USED FOR UNKNOWN INDICATION
     Dosage: UNK daily
     Route: 065

REACTIONS (22)
  - Abdominal tenderness [Unknown]
  - Iron deficiency anaemia [Unknown]
  - Body mass index decreased [Unknown]
  - Cardiac murmur [Unknown]
  - Constipation [Unknown]
  - Diabetes mellitus [Unknown]
  - Hiatus hernia [Unknown]
  - Mean cell volume decreased [Unknown]
  - Monocyte count increased [Unknown]
  - Neutrophil count increased [Not Recovered/Not Resolved]
  - Pyrexia [Recovered/Resolved]
  - Sinus tachycardia [Recovered/Resolved]
  - Skin disorder [Recovered/Resolved]
  - Thrombocytosis [Unknown]
  - Malaise [Unknown]
  - Urinary tract infection [Unknown]
  - White blood cell count increased [Not Recovered/Not Resolved]
  - Hypertension [Unknown]
  - White blood cell disorder [Unknown]
  - Aggression [Unknown]
  - Physical assault [Unknown]
  - Staphylococcal infection [Unknown]
